FAERS Safety Report 6971313-4 (Version None)
Quarter: 2010Q3

REPORT INFORMATION
  Report Type: 
  Country: None (occurrence: None)
  Receive Date: 20100908
  Receipt Date: 20100830
  Transmission Date: 20110219
  Serious: Yes (Hospitalization)
  Sender: FDA-Public Use
  Company Number: US-JNJFOC-20100702399

PATIENT
  Sex: Male
  Weight: 18.3 kg

DRUGS (9)
  1. CONCERTA [Suspect]
     Indication: ATTENTION DEFICIT/HYPERACTIVITY DISORDER
     Route: 048
  2. CONCERTA [Suspect]
     Route: 048
  3. STRATTERA [Suspect]
     Indication: ATTENTION DEFICIT/HYPERACTIVITY DISORDER
     Route: 048
  4. STUDY MEDICATION [Suspect]
     Indication: AMINO ACID METABOLISM DISORDER
     Route: 048
  5. CLONIDINE [Suspect]
     Indication: ATTENTION DEFICIT/HYPERACTIVITY DISORDER
     Route: 048
  6. CLONIDINE [Suspect]
     Route: 048
  7. MULTI-VITAMINS [Concomitant]
     Route: 065
  8. ARGININE [Concomitant]
     Indication: AMINO ACID METABOLISM DISORDER
     Route: 065
  9. CALCIUM [Concomitant]
     Route: 065

REACTIONS (4)
  - ABDOMINAL PAIN [None]
  - HYPERAMMONAEMIA [None]
  - INADEQUATE DIET [None]
  - NAUSEA [None]
